FAERS Safety Report 14032340 (Version 1)
Quarter: 2017Q4

REPORT INFORMATION
  Report Type: Spontaneous
  Country: US (occurrence: US)
  Receive Date: 20171002
  Receipt Date: 20171002
  Transmission Date: 20180321
  Serious: Yes (Death, Other)
  Sender: FDA-Public Use
  Company Number: US-ALEXION-A201710567

PATIENT
  Age: 2 Year
  Sex: Male

DRUGS (3)
  1. SOLIRIS [Suspect]
     Active Substance: ECULIZUMAB
     Indication: THROMBOTIC MICROANGIOPATHY
     Dosage: 600 MG, UNK
     Route: 042
     Dates: start: 20170919
  2. CYCLOSPORINE. [Concomitant]
     Active Substance: CYCLOSPORINE
     Indication: PRODUCT USED FOR UNKNOWN INDICATION
     Route: 065
  3. SOLIRIS [Suspect]
     Active Substance: ECULIZUMAB
     Indication: OFF LABEL USE

REACTIONS (6)
  - Haptoglobin decreased [Unknown]
  - Respiratory failure [Fatal]
  - Haemoglobin decreased [Unknown]
  - Off label use [Unknown]
  - Pulmonary alveolar haemorrhage [Fatal]
  - Reticulocyte count increased [Unknown]
